FAERS Safety Report 11744346 (Version 2)
Quarter: 2016Q1

REPORT INFORMATION
  Report Type: Spontaneous
  Country: US (occurrence: US)
  Receive Date: 20151116
  Receipt Date: 20160208
  Transmission Date: 20160525
  Serious: Yes (Other)
  Sender: FDA-Public Use
  Company Number: US-ABBOTT MEDICAL OPTICS-1044253

PATIENT
  Age: 66 Year
  Sex: Female

DRUGS (1)
  1. BLINK GEL TEARS [Suspect]
     Active Substance: POLYETHYLENE GLYCOL 400
     Indication: DRY EYE
     Route: 047

REACTIONS (5)
  - Instillation site irritation [None]
  - Eye irritation [Recovered/Resolved]
  - Instillation site pruritus [None]
  - Instillation site lacrimation [None]
  - Instillation site discomfort [None]

NARRATIVE: CASE EVENT DATE: 20150731
